FAERS Safety Report 13498037 (Version 1)
Quarter: 2017Q2

REPORT INFORMATION
  Report Type: Spontaneous
  Country: NO (occurrence: NO)
  Receive Date: 20170428
  Receipt Date: 20170428
  Transmission Date: 20170830
  Serious: Yes (Life-Threatening, Hospitalization, Disabling, Other)
  Sender: FDA-Public Use
  Company Number: NO-BRISTOL-MYERS SQUIBB COMPANY-BMS-2017-034572

PATIENT
  Age: 71 Year
  Sex: Female

DRUGS (1)
  1. ORENCIA [Suspect]
     Active Substance: ABATACEPT
     Indication: RHEUMATOID ARTHRITIS
     Dosage: 125 MG, Q4WK
     Route: 065
     Dates: start: 20150907, end: 20161201

REACTIONS (4)
  - Pneumonia [Unknown]
  - Off label use [Unknown]
  - Lung neoplasm malignant [Unknown]
  - Cancer surgery [Unknown]

NARRATIVE: CASE EVENT DATE: 201612
